FAERS Safety Report 6339196-3 (Version None)
Quarter: 2009Q3

REPORT INFORMATION
  Report Type: 
  Country: None (occurrence: None)
  Receive Date: 20090903
  Receipt Date: 20090825
  Transmission Date: 20100115
  Serious: Yes (Other)
  Sender: FDA-Public Use
  Company Number: US-B.I. PHARMACEUTICALS,INC./RIDGEFIELD-2009-BP-10304PF

PATIENT
  Sex: Male

DRUGS (2)
  1. SPIRIVA [Suspect]
  2. TIKOSYN [Suspect]

REACTIONS (1)
  - BRAIN OPERATION [None]
